FAERS Safety Report 4416101-8 (Version None)
Quarter: 2004Q3

REPORT INFORMATION
  Report Type: 
  Country: None (occurrence: None)
  Receive Date: 20040802
  Receipt Date: 20040721
  Transmission Date: 20050211
  Serious: Yes (Death, Hospitalization)
  Sender: FDA-Public Use
  Company Number: 2004050408

PATIENT
  Age: 58 Year
  Sex: Male

DRUGS (3)
  1. NORVASC [Suspect]
     Indication: HYPERTENSION
     Dosage: 5 MG (1 D), ORAL
     Route: 048
     Dates: start: 19970707
  2. DIGOXIN [Concomitant]
  3. CAPTOPRIL [Concomitant]

REACTIONS (2)
  - CARDIO-RESPIRATORY ARREST [None]
  - PNEUMONIA [None]
